FAERS Safety Report 8557232 (Version 5)
Quarter: 2020Q3

REPORT INFORMATION
  Report Type: Spontaneous
  Country: GB (occurrence: GB)
  Receive Date: 20120511
  Receipt Date: 20200813
  Transmission Date: 20201103
  Serious: Yes (Life-Threatening, Other)
  Sender: FDA-Public Use
  Company Number: GB-UCBSA-056713

PATIENT
  Age: 49 Year
  Sex: Female

DRUGS (11)
  1. VIMPAT [Suspect]
     Active Substance: LACOSAMIDE
     Dosage: 200 MG, 2X/DAY (BID)
  2. VIMPAT [Suspect]
     Active Substance: LACOSAMIDE
     Indication: PARTIAL SEIZURES
     Dosage: DAILY DOSE : 100MG
  3. LORAZEPAM. [Concomitant]
     Active Substance: LORAZEPAM
     Indication: SEIZURE
     Route: 042
  4. LEVOTHYROXINE. [Concomitant]
     Active Substance: LEVOTHYROXINE
     Indication: HYPOTHYROIDISM
     Dosage: 125MICROGRAM/DAY
  5. VIMPAT [Suspect]
     Active Substance: LACOSAMIDE
     Dosage: DAILY DOSE: 50MG/DAY
  6. VIMPAT [Suspect]
     Active Substance: LACOSAMIDE
     Dosage: 250 MG, 2X/DAY (BID)
     Route: 048
     Dates: start: 201008, end: 20110817
  7. CARBAMAZEPINE. [Concomitant]
     Active Substance: CARBAMAZEPINE
     Dosage: 600MG DAILY
     Dates: start: 2008
  8. LEVETIRACETAM. [Concomitant]
     Active Substance: LEVETIRACETAM
     Dosage: DAILY DOSE : 4000MG
  9. ZONISAMIDE. [Concomitant]
     Active Substance: ZONISAMIDE
     Dosage: DOSE TAPERED AT A RATE OF 50MG EVERY WEEK
  10. VIMPAT [Suspect]
     Active Substance: LACOSAMIDE
     Dosage: INCREASING DOSE BY 50MG EVERY WEEK
  11. ZONISAMIDE. [Concomitant]
     Active Substance: ZONISAMIDE
     Dosage: DAILY DOSE: 600MG

REACTIONS (7)
  - Electrocardiogram abnormal [Unknown]
  - Sinus bradycardia [Recovered/Resolved]
  - Sinus tachycardia [Recovered/Resolved]
  - Sinus arrest [Recovered/Resolved]
  - Nodal rhythm [Recovered/Resolved]
  - Ventricular extrasystoles [Recovered/Resolved]
  - Sinus node dysfunction [Recovered/Resolved]

NARRATIVE: CASE EVENT DATE: 20110725
